FAERS Safety Report 14128050 (Version 1)
Quarter: 2017Q4

REPORT INFORMATION
  Report Type: Spontaneous
  Country: US (occurrence: US)
  Receive Date: 20171026
  Receipt Date: 20171026
  Transmission Date: 20180321
  Serious: No
  Sender: FDA-Public Use
  Company Number: US-TEVA-727064ACC

PATIENT
  Sex: Female

DRUGS (1)
  1. HYDROXYCARBAMIDE [Suspect]
     Active Substance: HYDROXYUREA
     Dosage: 500 MILLIGRAM DAILY;
     Dates: start: 201602

REACTIONS (4)
  - Poor quality sleep [Unknown]
  - Eye pruritus [Unknown]
  - Nightmare [Unknown]
  - Quality of life decreased [Unknown]
